FAERS Safety Report 18886063 (Version 1)
Quarter: 2021Q1

REPORT INFORMATION
  Report Type: Spontaneous
  Country: US (occurrence: US)
  Receive Date: 20210212
  Receipt Date: 20210212
  Transmission Date: 20210420
  Serious: No
  Sender: FDA-Public Use
  Company Number: None

PATIENT
  Age: 77 Year
  Sex: Male
  Weight: 76.5 kg

DRUGS (17)
  1. ELIQUIS [Concomitant]
     Active Substance: APIXABAN
  2. METFORMIN [Concomitant]
     Active Substance: METFORMIN HYDROCHLORIDE
  3. TAMSULOSIN [Concomitant]
     Active Substance: TAMSULOSIN
  4. ALLOPURINOL. [Concomitant]
     Active Substance: ALLOPURINOL
  5. LUNESTA [Concomitant]
     Active Substance: ESZOPICLONE
  6. MVT [Concomitant]
  7. SPIRONOLACTONE. [Concomitant]
     Active Substance: SPIRONOLACTONE
  8. DIGOXIN. [Concomitant]
     Active Substance: DIGOXIN
  9. LASIX [Concomitant]
     Active Substance: FUROSEMIDE
  10. ATORVASTATING [Concomitant]
  11. FUROSEMIDE. [Concomitant]
     Active Substance: FUROSEMIDE
  12. CALCIUM [Concomitant]
     Active Substance: CALCIUM
  13. ACYCLOVIR. [Concomitant]
     Active Substance: ACYCLOVIR
  14. WELLBUTRIN [Concomitant]
     Active Substance: BUPROPION HYDROCHLORIDE
  15. MAGNESIUM [Concomitant]
     Active Substance: MAGNESIUM
  16. VENCLEXTA [Suspect]
     Active Substance: VENETOCLAX
     Indication: CHRONIC LYMPHOCYTIC LEUKAEMIA
     Dosage: ?          QUANTITY:2 TABLET(S);?
     Route: 048
     Dates: start: 20210111, end: 20210209
  17. VENCLEXTA [Suspect]
     Active Substance: VENETOCLAX
     Indication: CHRONIC LYMPHOCYTIC LEUKAEMIA
     Dosage: ?          QUANTITY:2 TABLET(S);?
     Route: 048
     Dates: start: 20210111

REACTIONS (5)
  - Fatigue [None]
  - Asthenia [None]
  - Muscular weakness [None]
  - Myalgia [None]
  - Pyrexia [None]

NARRATIVE: CASE EVENT DATE: 20210205
